FAERS Safety Report 17944008 (Version 1)
Quarter: 2020Q2

REPORT INFORMATION
  Report Type: Spontaneous
  Country: US (occurrence: US)
  Receive Date: 20200625
  Receipt Date: 20200625
  Transmission Date: 20200714
  Serious: Yes (Hospitalization)
  Sender: FDA-Public Use
  Company Number: US-OTSUKA-2020_011164

PATIENT
  Age: 42 Year
  Sex: Female

DRUGS (4)
  1. CONCERTA [Suspect]
     Active Substance: METHYLPHENIDATE HYDROCHLORIDE
     Indication: PRODUCT USED FOR UNKNOWN INDICATION
     Dosage: UNK
     Route: 065
     Dates: start: 202004
  2. ARIPIPRAZOLE. [Suspect]
     Active Substance: ARIPIPRAZOLE
     Indication: PRODUCT USED FOR UNKNOWN INDICATION
     Dosage: SPLITTING 10 MG IN HALF, TAKING 5 MG DOSE
     Route: 065
  3. CELEXA [Concomitant]
     Active Substance: CITALOPRAM HYDROBROMIDE
     Indication: PRODUCT USED FOR UNKNOWN INDICATION
     Dosage: UNK
     Route: 065
  4. REXULTI [Suspect]
     Active Substance: BREXPIPRAZOLE
     Indication: BIPOLAR I DISORDER
     Dosage: UNK
     Route: 065
     Dates: start: 202003

REACTIONS (9)
  - Weight decreased [Not Recovered/Not Resolved]
  - Dyskinesia [Recovered/Resolved]
  - Mania [Not Recovered/Not Resolved]
  - Restlessness [Not Recovered/Not Resolved]
  - Compulsive shopping [Not Recovered/Not Resolved]
  - Nephrolithiasis [Unknown]
  - Weight increased [Recovered/Resolved]
  - Drug effective for unapproved indication [Unknown]
  - Cardiac murmur [Unknown]

NARRATIVE: CASE EVENT DATE: 202003
